FAERS Safety Report 20615965 (Version 1)
Quarter: 2022Q1

REPORT INFORMATION
  Report Type: Spontaneous
  Country: US (occurrence: US)
  Receive Date: 20220321
  Receipt Date: 20220321
  Transmission Date: 20220423
  Serious: Yes (Other)
  Sender: FDA-Public Use
  Company Number: US-BAYER-2022A036880

PATIENT

DRUGS (1)
  1. ALEVE [Suspect]
     Active Substance: NAPROXEN SODIUM
     Indication: Tendonitis
     Dosage: UNK

REACTIONS (6)
  - Disability [None]
  - Product use in unapproved indication [Unknown]
  - Ulcer [Not Recovered/Not Resolved]
  - Adverse event [Unknown]
  - Pain [None]
  - Injury [None]
